FAERS Safety Report 8510672 (Version 4)
Quarter: 2013Q1

REPORT INFORMATION
  Report Type: Report from Study
  Country: BR (occurrence: BR)
  Receive Date: 20120413
  Receipt Date: 20130215
  Transmission Date: 20140127
  Serious: Yes (Hospitalization, Disabling, Other)
  Sender: FDA-Public Use
  Company Number: BR-ROCHE-1055602

PATIENT
  Sex: Female
  Weight: 62 kg

DRUGS (10)
  1. ACTEMRA [Suspect]
     Indication: RHEUMATOID ARTHRITIS
     Route: 065
     Dates: start: 201010
  2. ACTEMRA [Suspect]
     Route: 065
     Dates: start: 201011
  3. ACTEMRA [Suspect]
     Route: 065
     Dates: start: 201012
  4. ACTEMRA [Suspect]
     Route: 065
     Dates: start: 201103
  5. ACTEMRA [Suspect]
     Route: 065
     Dates: start: 201104
  6. ACTEMRA [Suspect]
     Route: 065
     Dates: start: 201105
  7. ACTEMRA [Suspect]
     Route: 065
     Dates: start: 201111
  8. ACTEMRA [Suspect]
     Route: 065
     Dates: start: 201112
  9. ACTEMRA [Suspect]
     Route: 065
     Dates: start: 201201
  10. ACTEMRA [Suspect]
     Route: 065
     Dates: start: 201202

REACTIONS (7)
  - Infection [Recovered/Resolved]
  - Venous occlusion [Not Recovered/Not Resolved]
  - Arterial occlusive disease [Not Recovered/Not Resolved]
  - Peripheral arterial occlusive disease [Unknown]
  - Leg amputation [Recovered/Resolved]
  - Peripheral ischaemia [Unknown]
  - Skin infection [Recovered/Resolved]
